FAERS Safety Report 20555997 (Version 3)
Quarter: 2022Q3

REPORT INFORMATION
  Report Type: Report from Study
  Country: AR (occurrence: AR)
  Receive Date: 20220304
  Receipt Date: 20220713
  Transmission Date: 20221026
  Serious: Yes (Other)
  Sender: FDA-Public Use
  Company Number: AR-NOVARTISPH-NVSC2021AR184514

PATIENT
  Sex: Male

DRUGS (1)
  1. COSENTYX [Suspect]
     Active Substance: SECUKINUMAB
     Indication: Psoriatic arthropathy
     Dosage: 150 MG, QMO
     Route: 058
     Dates: start: 20190821, end: 20210701

REACTIONS (11)
  - Candida infection [Unknown]
  - Arthritis [Unknown]
  - Fungal skin infection [Unknown]
  - General physical health deterioration [Unknown]
  - Oropharyngeal pain [Unknown]
  - Arthralgia [Unknown]
  - Decreased immune responsiveness [Unknown]
  - Immune system disorder [Unknown]
  - Dysphagia [Unknown]
  - Psoriasis [Unknown]
  - Gastric disorder [Unknown]
